FAERS Safety Report 10634900 (Version 2)
Quarter: 2014Q4

REPORT INFORMATION
  Report Type: Report from Study
  Country: US (occurrence: US)
  Receive Date: 20141205
  Receipt Date: 20141205
  Transmission Date: 20150529
  Serious: Yes (Other)
  Sender: FDA-Public Use
  Company Number: US-SA-2014SA104550

PATIENT
  Sex: Female

DRUGS (1)
  1. AUBAGIO [Suspect]
     Active Substance: TERIFLUNOMIDE
     Indication: MULTIPLE SCLEROSIS
     Route: 048
     Dates: start: 20140710

REACTIONS (17)
  - Feeling abnormal [Unknown]
  - Furuncle [Unknown]
  - Nausea [Unknown]
  - Loss of consciousness [Unknown]
  - Dizziness [Unknown]
  - Rash [Recovered/Resolved]
  - Blood pressure decreased [Unknown]
  - Blood potassium decreased [Unknown]
  - Headache [Unknown]
  - Drug dose omission [Unknown]
  - Musculoskeletal pain [Unknown]
  - Wheezing [Unknown]
  - Tendonitis [Unknown]
  - Swelling [Unknown]
  - Dehydration [Unknown]
  - Gastroenteritis viral [Unknown]
  - Gastrointestinal motility disorder [Unknown]
